FAERS Safety Report 7245908-7 (Version None)
Quarter: 2011Q1

REPORT INFORMATION
  Report Type: 
  Country: None (occurrence: None)
  Receive Date: 20110126
  Receipt Date: 20060620
  Transmission Date: 20110831
  Serious: Yes (Other)
  Sender: FDA-Public Use
  Company Number: PHHY2006CL02746

PATIENT

DRUGS (1)
  1. TAREG [Suspect]
     Route: 048

REACTIONS (1)
  - BRONCHOPNEUMONIA [None]
